FAERS Safety Report 6711171-6 (Version None)
Quarter: 2010Q2

REPORT INFORMATION
  Report Type: 
  Country: None (occurrence: None)
  Receive Date: 20100504
  Receipt Date: 20100504
  Transmission Date: 20101027
  Serious: Yes (Life-Threatening)
  Sender: FDA-Public Use
  Company Number: None

PATIENT
  Sex: Female
  Weight: 61.2356 kg

DRUGS (1)
  1. COMBIGAN [Suspect]
     Indication: SWOLLEN TONGUE
     Dosage: DAILY 1 DROP EACH EYE
     Route: 047
     Dates: start: 20090401

REACTIONS (1)
  - SWOLLEN TONGUE [None]
